FAERS Safety Report 8227977-0 (Version None)
Quarter: 2012Q1

REPORT INFORMATION
  Report Type: 
  Country: None (occurrence: None)
  Receive Date: 20120322
  Receipt Date: 20120315
  Transmission Date: 20120608
  Serious: Yes (Other)
  Sender: FDA-Public Use
  Company Number: PHHY2012GB022918

PATIENT
  Age: 64 Year
  Sex: Female

DRUGS (2)
  1. CARBOPLATIN [Suspect]
     Indication: OVARIAN CANCER
     Dates: start: 20100801, end: 20100801
  2. PACLITAXEL [Suspect]
     Indication: OVARIAN CANCER
     Dates: start: 20100801, end: 20100801

REACTIONS (1)
  - HYPOPITUITARISM [None]
